FAERS Safety Report 7204345-1 (Version None)
Quarter: 2010Q4

REPORT INFORMATION
  Report Type: 
  Country: None (occurrence: None)
  Receive Date: 20101230
  Receipt Date: 20101224
  Transmission Date: 20110411
  Serious: Yes (Other)
  Sender: FDA-Public Use
  Company Number: JP-AMGEN-JPNCT2010011976

PATIENT

DRUGS (19)
  1. PANITUMUMAB [Suspect]
     Indication: COLORECTAL CANCER
     Dosage: 6 MG/KG, Q2WK
     Route: 041
     Dates: start: 20101015, end: 20101029
  2. FLUOROURACIL [Suspect]
     Indication: COLORECTAL CANCER
     Route: 040
     Dates: start: 20101015, end: 20101029
  3. FLUOROURACIL [Suspect]
     Route: 041
     Dates: start: 20101015, end: 20101029
  4. IRINOTECAN HYDROCHLORIDE [Suspect]
     Indication: COLORECTAL CANCER
     Route: 041
     Dates: start: 20101015, end: 20101029
  5. CALCIUM LEVOFOLINATE [Concomitant]
     Indication: COLORECTAL CANCER
     Route: 041
     Dates: start: 20101015, end: 20101029
  6. WYPAX [Concomitant]
     Route: 048
  7. KYTRIL [Concomitant]
     Route: 042
  8. DEXART [Concomitant]
     Route: 042
  9. ALOXI [Concomitant]
     Route: 042
  10. EMEND [Concomitant]
     Route: 048
  11. ATELEC [Concomitant]
     Route: 048
  12. OMEPRAL [Concomitant]
     Route: 048
  13. PAXIL [Concomitant]
     Route: 048
  14. MYSLEE [Concomitant]
     Route: 048
  15. ROHYPNOL [Concomitant]
     Route: 048
  16. THYRADIN-S [Concomitant]
     Route: 048
  17. KINEDAK [Concomitant]
     Route: 048
  18. METHYCOBAL [Concomitant]
     Route: 048
  19. CEROCRAL [Concomitant]
     Route: 048

REACTIONS (9)
  - DECREASED APPETITE [None]
  - DERMATITIS ACNEIFORM [None]
  - DIARRHOEA [None]
  - FATIGUE [None]
  - NAUSEA [None]
  - PALMAR-PLANTAR ERYTHRODYSAESTHESIA SYNDROME [None]
  - PARONYCHIA [None]
  - STOMATITIS [None]
  - VOMITING [None]
